FAERS Safety Report 9596299 (Version 3)
Quarter: 2013Q4

REPORT INFORMATION
  Report Type: Report from Study
  Country: US (occurrence: US)
  Receive Date: 20131004
  Receipt Date: 20131031
  Transmission Date: 20140711
  Serious: Yes (Hospitalization)
  Sender: FDA-Public Use
  Company Number: US-ACTELION-A-NJ2011-57246

PATIENT
  Age: 69 Year
  Sex: Female

DRUGS (3)
  1. TRACLEER [Suspect]
     Indication: PULMONARY ARTERIAL HYPERTENSION
     Dosage: UNK
     Route: 048
  2. ADCIRCA [Concomitant]
  3. TYVASO [Concomitant]

REACTIONS (7)
  - Pulmonary oedema [Unknown]
  - Therapeutic aspiration [Unknown]
  - Oedema [Unknown]
  - Abdominal distension [Unknown]
  - Dyspnoea [Unknown]
  - Ascites [Unknown]
  - Dyspnoea exertional [Unknown]
